FAERS Safety Report 5556032-3 (Version None)
Quarter: 2007Q4

REPORT INFORMATION
  Report Type: 
  Country: None (occurrence: None)
  Receive Date: 20071213
  Receipt Date: 20071204
  Transmission Date: 20080405
  Serious: Yes (Other)
  Sender: FDA-Public Use
  Company Number: US-PFIZER INC-2007102949

PATIENT
  Sex: Male
  Weight: 90.909 kg

DRUGS (9)
  1. DETROL LA [Suspect]
     Indication: INCONTINENCE
     Dates: start: 20071123, end: 20071202
  2. ALL OTHER THERAPEUTIC PRODUCTS [Concomitant]
  3. ZOCOR [Concomitant]
  4. ZETIA [Concomitant]
  5. ALL OTHER THERAPEUTIC PRODUCTS [Concomitant]
  6. PLAVIX [Concomitant]
  7. ACETYLSALICYLIC ACID SRT [Concomitant]
  8. VITAMINS [Concomitant]
  9. GLUCOSAMINE W/CHONDROITIN SULFATES [Concomitant]

REACTIONS (2)
  - BEDRIDDEN [None]
  - RENAL PAIN [None]
